FAERS Safety Report 23196509 (Version 2)
Quarter: 2023Q4

REPORT INFORMATION
  Report Type: Spontaneous
  Country: US (occurrence: US)
  Receive Date: 20231117
  Receipt Date: 20231222
  Transmission Date: 20240110
  Serious: Yes (Hospitalization, Other)
  Sender: FDA-Public Use
  Company Number: ENDB23-04210

PATIENT
  Age: 38 Year
  Sex: Male
  Weight: 72.562 kg

DRUGS (8)
  1. XIAFLEX [Suspect]
     Active Substance: COLLAGENASE CLOSTRIDIUM HISTOLYTICUM
     Indication: Peyronie^s disease
     Dosage: 0.32 MILLIGRAM, UNKNOWN (CYCLE THREE, INJECTION TWO)
     Route: 026
     Dates: start: 20231103
  2. XIAFLEX [Suspect]
     Active Substance: COLLAGENASE CLOSTRIDIUM HISTOLYTICUM
     Dosage: 0.32 MILLIGRAM, UNKNOWN (CYCLE THREE, INJECTION ONE)
     Route: 026
     Dates: start: 2023
  3. XIAFLEX [Suspect]
     Active Substance: COLLAGENASE CLOSTRIDIUM HISTOLYTICUM
     Dosage: 0.32 MILLIGRAM, UNKNOWN (CYCLE TWO, INJECTION TWO)
     Route: 026
     Dates: start: 2023
  4. XIAFLEX [Suspect]
     Active Substance: COLLAGENASE CLOSTRIDIUM HISTOLYTICUM
     Dosage: 0.32 MILLIGRAM, UNKNOWN (CYCLE TWO, INJECTION ONE)
     Route: 026
     Dates: start: 2023
  5. XIAFLEX [Suspect]
     Active Substance: COLLAGENASE CLOSTRIDIUM HISTOLYTICUM
     Dosage: 0.32 MILLIGRAM, UNKNOWN (CYCLE ONE, INJECTION TWO)
     Route: 026
     Dates: start: 2023
  6. XIAFLEX [Suspect]
     Active Substance: COLLAGENASE CLOSTRIDIUM HISTOLYTICUM
     Dosage: 0.32 MILLIGRAM, UNKNOWN (CYCLE ONE, INJECTION ONE)
     Route: 026
     Dates: start: 20230710
  7. DEXTROAMPHETAMINE [Concomitant]
     Active Substance: DEXTROAMPHETAMINE
     Indication: Attention deficit hyperactivity disorder
     Dosage: 15 MILLIGRAM, DAILY
     Route: 048
  8. PANTOPRAZOLE [Concomitant]
     Active Substance: PANTOPRAZOLE
     Indication: Gastrooesophageal reflux disease
     Dosage: 40 MILLIGRAM, DAILY
     Route: 048

REACTIONS (3)
  - Arterial haemorrhage [Recovering/Resolving]
  - Fracture of penis [Recovering/Resolving]
  - Off label use [Recovered/Resolved]

NARRATIVE: CASE EVENT DATE: 20230710
